FAERS Safety Report 11686293 (Version 1)
Quarter: 2015Q4

REPORT INFORMATION
  Report Type: Spontaneous
  Country: US (occurrence: US)
  Receive Date: 20151030
  Receipt Date: 20151030
  Transmission Date: 20160304
  Serious: No
  Sender: FDA-Public Use
  Company Number: US-MYLANLABS-2015M1026609

PATIENT
  Sex: Female

DRUGS (1)
  1. RISPERIDONE TABLETS, USP [Suspect]
     Active Substance: RISPERIDONE
     Dosage: UNK
     Dates: end: 20150723

REACTIONS (1)
  - Body temperature fluctuation [Not Recovered/Not Resolved]
